FAERS Safety Report 17652961 (Version 1)
Quarter: 2020Q2

REPORT INFORMATION
  Report Type: Spontaneous
  Country: JP (occurrence: JP)
  Receive Date: 20200409
  Receipt Date: 20200409
  Transmission Date: 20200713
  Serious: Yes (Other)
  Sender: FDA-Public Use
  Company Number: JP-REGENERON PHARMACEUTICALS, INC.-2020-29740

PATIENT

DRUGS (1)
  1. EYLEA [Suspect]
     Active Substance: AFLIBERCEPT
     Indication: POLYPOIDAL CHOROIDAL VASCULOPATHY
     Dosage: 2 MG, ONCE
     Route: 031

REACTIONS (4)
  - Detachment of retinal pigment epithelium [Recovering/Resolving]
  - Visual acuity reduced [Recovering/Resolving]
  - Drug ineffective [Unknown]
  - Polypoidal choroidal vasculopathy [Unknown]
